FAERS Safety Report 7648098-1 (Version None)
Quarter: 2011Q3

REPORT INFORMATION
  Report Type: 
  Country: None (occurrence: None)
  Receive Date: 20110801
  Receipt Date: 20110725
  Transmission Date: 20111222
  Serious: Yes (Hospitalization, Other)
  Sender: FDA-Public Use
  Company Number: US-TEVA-292196USA

PATIENT
  Age: 75 Year
  Sex: Male

DRUGS (5)
  1. BUDESONIDE [Suspect]
     Indication: COLITIS
     Dosage: 9 MILLIGRAM;
     Route: 048
  2. RITONAVIR [Interacting]
     Indication: HIV INFECTION
  3. ATAZANAVIR [Concomitant]
  4. LAMIVUDINE [Concomitant]
  5. NEVIRAPINE [Concomitant]

REACTIONS (2)
  - CUSHING'S SYNDROME [None]
  - DRUG INTERACTION [None]
